FAERS Safety Report 14168873 (Version 1)
Quarter: 2017Q4

REPORT INFORMATION
  Report Type: Report from Study
  Country: US (occurrence: US)
  Receive Date: 20171107
  Receipt Date: 20171107
  Transmission Date: 20180321
  Serious: Yes (Other)
  Sender: FDA-Public Use
  Company Number: US-MYLANLABS-2017M1069294

PATIENT
  Sex: Male

DRUGS (1)
  1. PAMIDRONATE [Suspect]
     Active Substance: PAMIDRONATE DISODIUM
     Indication: OSTEOPOROSIS
     Dosage: UNKNOWN DOSAGE (DIVIDED INTO 2 DOSES)
     Route: 041

REACTIONS (2)
  - Urinary retention [Recovered/Resolved]
  - Serotonin syndrome [Recovered/Resolved]
